FAERS Safety Report 10705025 (Version 1)
Quarter: 2015Q1

REPORT INFORMATION
  Report Type: Spontaneous
  Country: US (occurrence: None)
  Receive Date: 20150109
  Receipt Date: 20150109
  Transmission Date: 20150721
  Serious: Yes (Other)
  Sender: FDA-Public Use
  Company Number: None

PATIENT
  Age: 27 Year
  Sex: Female

DRUGS (1)
  1. SUBOXONE [Suspect]
     Active Substance: BUPRENORPHINE HYDROCHLORIDE\NALOXONE HYDROCHLORIDE
     Indication: DRUG DEPENDENCE
     Dosage: 1 EACH FILM QD SUBLINGUAL
     Route: 060
     Dates: start: 20141130, end: 20150108

REACTIONS (3)
  - Ulcer [None]
  - Inflammation [None]
  - Irritability [None]

NARRATIVE: CASE EVENT DATE: 20150108
